FAERS Safety Report 5143037-X (Version None)
Quarter: 2006Q4

REPORT INFORMATION
  Report Type: 
  Country: None (occurrence: None)
  Receive Date: 20061103
  Receipt Date: 20061017
  Transmission Date: 20070319
  Serious: Yes (Death, Hospitalization)
  Sender: FDA-Public Use
  Company Number: 2006PK02081

PATIENT
  Age: 262 Month
  Sex: Female
  Weight: 57 kg

DRUGS (9)
  1. SEROQUEL [Suspect]
     Indication: PSYCHOTIC DISORDER
     Route: 048
     Dates: start: 20020101, end: 20060928
  2. ALLOPURINOL [Concomitant]
  3. BIOCARN [Concomitant]
     Dates: start: 20060922
  4. BIOCARN [Concomitant]
     Route: 042
     Dates: start: 20060922
  5. BIOCARN [Concomitant]
     Route: 042
  6. COTRIM [Concomitant]
  7. COLISTIN [Concomitant]
  8. LGG [Concomitant]
  9. URBASON [Concomitant]
     Indication: OPTIC NEURITIS

REACTIONS (6)
  - GASTRITIS [None]
  - GASTROENTERITIS [None]
  - METABOLIC ACIDOSIS [None]
  - NAUSEA [None]
  - OPTIC NEURITIS [None]
  - VOMITING [None]
